FAERS Safety Report 9412241 (Version 1)
Quarter: 2013Q3

REPORT INFORMATION
  Report Type: Spontaneous
  Country: US (occurrence: US)
  Receive Date: 20130722
  Receipt Date: 20130722
  Transmission Date: 20140515
  Serious: Yes (Hospitalization)
  Sender: FDA-Public Use
  Company Number: US-ELI_LILLY_AND_COMPANY-US201307005723

PATIENT
  Age: 67 Year
  Sex: Male
  Weight: 91.16 kg

DRUGS (1)
  1. EFFIENT [Suspect]
     Indication: PROPHYLAXIS
     Dosage: UNK
     Dates: start: 20121002, end: 20130524

REACTIONS (1)
  - Bursitis [Unknown]
